FAERS Safety Report 16761336 (Version 2)
Quarter: 2019Q3

REPORT INFORMATION
  Report Type: Report from Study
  Country: CH (occurrence: CH)
  Receive Date: 20190830
  Receipt Date: 20190904
  Transmission Date: 20191005
  Serious: Yes (Hospitalization)
  Sender: FDA-Public Use
  Company Number: CH-AMGEN-CHENI2019133289

PATIENT
  Age: 27 Year
  Sex: Male

DRUGS (1)
  1. TALIMOGENE LAHERPAREPVEC [Suspect]
     Active Substance: TALIMOGENE LAHERPAREPVEC
     Indication: MELANOMA RECURRENT
     Dosage: 4 MILLILITER
     Route: 026
     Dates: start: 20190109

REACTIONS (1)
  - Tumour ulceration [Recovered/Resolved]

NARRATIVE: CASE EVENT DATE: 20190130
